FAERS Safety Report 4925103-4 (Version None)
Quarter: 2006Q1

REPORT INFORMATION
  Report Type: 
  Country: None (occurrence: None)
  Receive Date: 20060228
  Receipt Date: 20060130
  Transmission Date: 20060701
  Serious: No
  Sender: FDA-Public Use
  Company Number: US-GLAXOSMITHKLINE-A0591697A

PATIENT
  Age: 46 Year
  Sex: Male

DRUGS (2)
  1. EPZICOM [Suspect]
     Indication: HIV INFECTION
     Dosage: 1TAB PER DAY
     Route: 048
     Dates: start: 20060104, end: 20060118
  2. SUSTIVA [Suspect]
     Indication: HIV INFECTION
     Route: 065

REACTIONS (7)
  - CHILLS [None]
  - FATIGUE [None]
  - HYPERSENSITIVITY [None]
  - MALAISE [None]
  - PYREXIA [None]
  - RASH [None]
  - TREMOR [None]
